FAERS Safety Report 5422803-7 (Version None)
Quarter: 2007Q3

REPORT INFORMATION
  Report Type: 
  Country: None (occurrence: None)
  Receive Date: 20070822
  Receipt Date: 20070813
  Transmission Date: 20080115
  Serious: Yes (Other)
  Sender: FDA-Public Use
  Company Number: US-PFIZER INC-2007067197

PATIENT
  Sex: Female
  Weight: 41.7 kg

DRUGS (11)
  1. XALATAN [Suspect]
     Indication: GLAUCOMA
     Dosage: TEXT:ONE DROP IN EACH EYE, ONCE DAILY
  2. SYNTHROID [Concomitant]
  3. BENAZEPRIL HYDROCHLORIDE [Concomitant]
     Indication: HYPERTENSION
  4. HYDROCHLOROTHIAZIDE [Concomitant]
  5. POTASSIUM CHLORIDE [Concomitant]
  6. IBUPROFEN TABLETS [Concomitant]
  7. MULTIVITAMIN [Concomitant]
  8. TYLENOL [Concomitant]
  9. BILBERRY [Concomitant]
  10. OSCAL [Concomitant]
  11. FOSAMAX [Concomitant]

REACTIONS (2)
  - RENAL DISORDER [None]
  - VISION BLURRED [None]
